FAERS Safety Report 5441448-6 (Version None)
Quarter: 2007Q3

REPORT INFORMATION
  Report Type: 
  Country: None (occurrence: None)
  Receive Date: 20070904
  Receipt Date: 20070823
  Transmission Date: 20080115
  Serious: Yes (Other)
  Sender: FDA-Public Use
  Company Number: US-JNJFOC-20070806174

PATIENT
  Sex: Male
  Weight: 84.37 kg

DRUGS (6)
  1. FENTANYL TRANSDERMAL SYSTEM [Suspect]
     Indication: PAIN
     Route: 062
  2. FENTANYL TRANSDERMAL SYSTEM [Suspect]
     Indication: SKULL FRACTURE
     Route: 062
  3. CLONIDINE [Concomitant]
     Indication: HYPERTENSION
     Route: 048
  4. LISINOPRIL [Concomitant]
     Indication: HYPERTENSION
     Route: 048
  5. CELEXA [Concomitant]
     Indication: PAIN
     Route: 048
  6. CELEXA [Concomitant]
     Indication: DEPRESSION
     Route: 048

REACTIONS (6)
  - CHILLS [None]
  - CHOLELITHIASIS [None]
  - DIARRHOEA [None]
  - HYPERHIDROSIS [None]
  - INADEQUATE ANALGESIA [None]
  - PHARMACEUTICAL PRODUCT COMPLAINT [None]
